FAERS Safety Report 6140839-8 (Version None)
Quarter: 2009Q2

REPORT INFORMATION
  Report Type: 
  Country: None (occurrence: None)
  Receive Date: 20090402
  Receipt Date: 20081204
  Transmission Date: 20091009
  Serious: No
  Sender: FDA-Public Use
  Company Number: US-KINGPHARMUSA00001-K200801376

PATIENT
  Sex: Female
  Weight: 113.38 kg

DRUGS (3)
  1. SKELAXIN [Suspect]
     Indication: MUSCLE SPASMS
     Dosage: UNK, PRN
     Route: 048
     Dates: start: 20080601
  2. VALSARTAN [Concomitant]
     Indication: HYPERTENSION
     Dosage: UNK
  3. ALLOPURINOL [Concomitant]
     Indication: GOUT
     Dosage: UNK

REACTIONS (3)
  - BLOOD URIC ACID INCREASED [None]
  - HEADACHE [None]
  - SOMNOLENCE [None]
